FAERS Safety Report 14434276 (Version 1)
Quarter: 2018Q1

REPORT INFORMATION
  Report Type: Spontaneous
  Country: JP (occurrence: JP)
  Receive Date: 20180124
  Receipt Date: 20180124
  Transmission Date: 20180509
  Serious: Yes (Other)
  Sender: FDA-Public Use
  Company Number: GXJP2018JP000526

PATIENT
  Sex: Female

DRUGS (2)
  1. WELL-BI TABLETS [Suspect]
     Active Substance: BISOPROLOL FUMARATE
     Dosage: 1 DF, QD
     Route: 048
     Dates: start: 201707
  2. WELL-BI TABLETS [Suspect]
     Active Substance: BISOPROLOL FUMARATE
     Indication: PRODUCT USED FOR UNKNOWN INDICATION
     Dosage: 2 DF (TABLETS), QD
     Route: 048

REACTIONS (8)
  - Labile blood pressure [Unknown]
  - Bradycardia [Unknown]
  - Malaise [Unknown]
  - Arrhythmia [Unknown]
  - Jaundice [Recovered/Resolved]
  - Tachycardia [Unknown]
  - Blood pressure decreased [Recovered/Resolved]
  - Dizziness [Unknown]

NARRATIVE: CASE EVENT DATE: 201801
